FAERS Safety Report 16388267 (Version 3)
Quarter: 2019Q2

REPORT INFORMATION
  Report Type: Spontaneous
  Country: FI (occurrence: FI)
  Receive Date: 20190604
  Receipt Date: 20190607
  Transmission Date: 20190711
  Serious: Yes (Other)
  Sender: FDA-Public Use
  Company Number: FI-ELI_LILLY_AND_COMPANY-FI201905011258

PATIENT
  Sex: Male

DRUGS (1)
  1. ZYPADHERA [Suspect]
     Active Substance: OLANZAPINE PAMOATE
     Indication: SCHIZOPHRENIA
     Dosage: 405 MG, 2/M
     Route: 030
     Dates: start: 2017

REACTIONS (10)
  - Dysarthria [Unknown]
  - Dysphagia [Unknown]
  - Dizziness postural [Unknown]
  - Restlessness [Unknown]
  - Prescribed overdose [Unknown]
  - Feeling abnormal [Unknown]
  - Anxiety [Unknown]
  - Dizziness [Unknown]
  - Product administered at inappropriate site [Unknown]
  - Post-injection delirium sedation syndrome [Unknown]

NARRATIVE: CASE EVENT DATE: 20190521
